FAERS Safety Report 7447849-9 (Version None)
Quarter: 2011Q2

REPORT INFORMATION
  Report Type: 
  Country: None (occurrence: None)
  Receive Date: 20110429
  Receipt Date: 20100510
  Transmission Date: 20111010
  Serious: No
  Sender: FDA-Public Use
  Company Number: US-ASTRAZENECA-2010SE08432

PATIENT
  Sex: Female

DRUGS (1)
  1. NEXIUM [Suspect]
     Dosage: 1 TIME DAILY
     Route: 048

REACTIONS (6)
  - CHOLELITHIASIS [None]
  - DRUG INEFFECTIVE [None]
  - ABDOMINAL PAIN UPPER [None]
  - DRUG EXPOSURE DURING PREGNANCY [None]
  - GASTROOESOPHAGEAL REFLUX DISEASE [None]
  - BLOOD CHOLESTEROL ABNORMAL [None]
